FAERS Safety Report 20447618 (Version 2)
Quarter: 2022Q1

REPORT INFORMATION
  Report Type: Report from Study
  Country: US (occurrence: US)
  Receive Date: 20220209
  Receipt Date: 20220215
  Transmission Date: 20220424
  Serious: Yes (Hospitalization, Other)
  Sender: FDA-Public Use
  Company Number: US-ABBVIE-22K-163-4267239-00

PATIENT
  Sex: Male
  Weight: 78.088 kg

DRUGS (2)
  1. DUOPA [Suspect]
     Active Substance: CARBIDOPA\LEVODOPA
     Indication: Parkinson^s disease
     Route: 050
     Dates: start: 20200228, end: 202201
  2. DUOPA [Suspect]
     Active Substance: CARBIDOPA\LEVODOPA
     Indication: Parkinson^s disease

REACTIONS (11)
  - Melanocytic naevus [Not Recovered/Not Resolved]
  - Rehabilitation therapy [Unknown]
  - Post-traumatic pain [Recovered/Resolved]
  - Fall [Recovered/Resolved]
  - Swelling [Unknown]
  - Walking aid user [Unknown]
  - Gait inability [Not Recovered/Not Resolved]
  - White blood cell count increased [Recovered/Resolved]
  - Chest X-ray abnormal [Unknown]
  - Dementia [Not Recovered/Not Resolved]
  - Pain [Not Recovered/Not Resolved]

NARRATIVE: CASE EVENT DATE: 20210101
